FAERS Safety Report 9167317 (Version 1)
Quarter: 2013Q1

REPORT INFORMATION
  Report Type: Spontaneous
  Country: DE (occurrence: DE)
  Receive Date: 20130318
  Receipt Date: 20130318
  Transmission Date: 20140127
  Serious: Yes (Other)
  Sender: FDA-Public Use
  Company Number: DE-AMGEN-DEUSP2013018290

PATIENT
  Age: 73 Year
  Sex: Female

DRUGS (5)
  1. ENBREL [Suspect]
     Indication: RHEUMATOID ARTHRITIS
     Dosage: 50 MG ONCE A WEEK
     Dates: start: 20021101
  2. ENBREL [Suspect]
     Dosage: UNK
  3. PREDNISOLON                        /00016201/ [Concomitant]
     Dosage: 2.5-5 MG, UNK FREQUENCY
  4. OXYGESIC [Concomitant]
     Dosage: 5X/DAY
  5. LYRICA [Concomitant]
     Dosage: UNK

REACTIONS (3)
  - Pulmonary oedema [Unknown]
  - Back disorder [Unknown]
  - Pneumonia [Unknown]
